FAERS Safety Report 12427944 (Version 6)
Quarter: 2018Q2

REPORT INFORMATION
  Report Type: Report from Study
  Country: DE (occurrence: DE)
  Receive Date: 20160602
  Receipt Date: 20180405
  Transmission Date: 20180711
  Serious: Yes (Life-Threatening, Hospitalization)
  Sender: FDA-Public Use
  Company Number: DE-ROCHE-1751860

PATIENT
  Age: 55 Year
  Sex: Female

DRUGS (14)
  1. BEVACIZUMAB. [Suspect]
     Active Substance: BEVACIZUMAB
     Dosage: MOST RECENT DOSE; 14/SEP/2016
     Route: 065
     Dates: start: 20161026
  2. CEFEXIN [Concomitant]
     Route: 048
     Dates: start: 20160506
  3. CARBOPLATIN. [Concomitant]
     Active Substance: CARBOPLATIN
     Route: 065
     Dates: start: 201509, end: 201601
  4. PACLITAXEL. [Concomitant]
     Active Substance: PACLITAXEL
     Route: 065
     Dates: start: 201509, end: 201601
  5. METOPROLOL. [Concomitant]
     Active Substance: METOPROLOL
     Route: 048
  6. PANTOZOL [Concomitant]
     Active Substance: PANTOPRAZOLE SODIUM
     Route: 048
  7. BEVACIZUMAB. [Suspect]
     Active Substance: BEVACIZUMAB
     Route: 065
     Dates: start: 201509, end: 201601
  8. BEVACIZUMAB. [Suspect]
     Active Substance: BEVACIZUMAB
     Dosage: MOST RECENT DOSE; 14/SEP/2016
     Route: 065
     Dates: start: 20160622, end: 20161005
  9. BEVACIZUMAB. [Suspect]
     Active Substance: BEVACIZUMAB
     Indication: OVARIAN CANCER
     Dosage: LAST DOSE BEFORE SAE: 20/APR/2016
     Route: 065
     Dates: start: 20160309, end: 20160525
  10. BLINDED OLAPARIB [Suspect]
     Active Substance: OLAPARIB
     Dosage: MOST RECENT DOSE: 05/OCT/2016
     Route: 048
     Dates: start: 20160510, end: 20161006
  11. BLINDED OLAPARIB [Suspect]
     Active Substance: OLAPARIB
     Route: 048
     Dates: start: 20160622
  12. BLINDED OLAPARIB [Suspect]
     Active Substance: OLAPARIB
     Route: 048
     Dates: start: 20160511
  13. LYRICA [Concomitant]
     Active Substance: PREGABALIN
     Route: 048
  14. BLINDED OLAPARIB [Suspect]
     Active Substance: OLAPARIB
     Indication: OVARIAN CANCER
     Dosage: LAST DOSE BEFORE SAE: 29/APR/2016
     Route: 048
     Dates: start: 20160309, end: 20160430

REACTIONS (2)
  - Anaemia [Recovered/Resolved]
  - Fatigue [Not Recovered/Not Resolved]

NARRATIVE: CASE EVENT DATE: 20160429
